FAERS Safety Report 6570041-7 (Version None)
Quarter: 2010Q1

REPORT INFORMATION
  Report Type: 
  Country: None (occurrence: None)
  Receive Date: 20100204
  Receipt Date: 20100125
  Transmission Date: 20100710
  Serious: Yes (Other)
  Sender: FDA-Public Use
  Company Number: CH-ROCHE-681353

PATIENT
  Age: 42 Year
  Sex: Male

DRUGS (9)
  1. XELODA [Suspect]
     Indication: GASTRIC CANCER
     Route: 065
  2. AVASTIN [Suspect]
     Indication: GASTRIC CANCER
     Route: 065
  3. EPIRUBICIN [Concomitant]
     Indication: GASTRIC CANCER
  4. OXALIPLATIN [Concomitant]
     Indication: GASTRIC CANCER
  5. CARBOPLATIN [Concomitant]
     Indication: GASTRIC CANCER
  6. TAXOTERE [Concomitant]
     Indication: GASTRIC CANCER
  7. MITOMYCIN [Concomitant]
     Indication: GASTRIC CANCER
  8. IRINOTECAN HCL [Concomitant]
     Indication: GASTRIC CANCER
  9. 5-FU [Concomitant]
     Indication: GASTRIC CANCER

REACTIONS (3)
  - ACUTE ABDOMEN [None]
  - GASTROINTESTINAL HAEMORRHAGE [None]
  - MALIGNANT NEOPLASM PROGRESSION [None]
